FAERS Safety Report 26082689 (Version 1)
Quarter: 2025Q4

REPORT INFORMATION
  Report Type: Spontaneous
  Country: US (occurrence: None)
  Receive Date: 20251123
  Receipt Date: 20251123
  Transmission Date: 20260117
  Serious: Yes (Other)
  Sender: FDA-CTU
  Company Number: None

PATIENT
  Age: 68 Year
  Sex: Female

DRUGS (1)
  1. JUBBONTI [Suspect]
     Active Substance: DENOSUMAB-BBDZ
     Dosage: 60MG : EVERY 6 MONTHS ?

REACTIONS (10)
  - Headache [None]
  - Abdominal distension [None]
  - Chest pain [None]
  - Back pain [None]
  - Rash [None]
  - Pain in extremity [None]
  - Dizziness [None]
  - Heart rate increased [None]
  - Nausea [None]
  - Dyspnoea [None]
